FAERS Safety Report 6924340-7 (Version None)
Quarter: 2010Q3

REPORT INFORMATION
  Report Type: 
  Country: None (occurrence: None)
  Receive Date: 20100811
  Receipt Date: 20100811
  Transmission Date: 20110219
  Serious: Yes (Other)
  Sender: FDA-Public Use
  Company Number: None

PATIENT
  Sex: Female
  Weight: 98.4306 kg

DRUGS (6)
  1. CIPRO [Suspect]
     Indication: SINUSITIS
     Dosage: 500 MG BID X 10 DAY
     Dates: start: 20080219
  2. CIPRO [Suspect]
     Indication: SINUSITIS
     Dosage: 500 MG BID X 10 DAY
     Dates: start: 20080229
  3. CORTISPORIN [Concomitant]
  4. FLONASE [Concomitant]
  5. ZYRTEC [Concomitant]
  6. MUCINEX [Concomitant]

REACTIONS (1)
  - RASH [None]
